FAERS Safety Report 9646478 (Version 3)
Quarter: 2014Q1

REPORT INFORMATION
  Report Type: Report from Study
  Country: US (occurrence: US)
  Receive Date: 20131025
  Receipt Date: 20140207
  Transmission Date: 20141002
  Serious: Yes (Other)
  Sender: FDA-Public Use
  Company Number: US-ABBVIE-13P-163-1160518-00

PATIENT
  Age: 35 Year
  Sex: Female

DRUGS (7)
  1. LUPRON DEPOT 3.75MG [Suspect]
     Indication: ENDOMETRIOSIS
     Dosage: MONTHLY
     Dates: start: 20131017
  2. LUPRON DEPOT 11.25MG [Suspect]
     Indication: ENDOMETRIOSIS
     Dates: start: 1998
  3. PROGESTIN [Suspect]
     Indication: HORMONE REPLACEMENT THERAPY
  4. ESTROGEN [Suspect]
     Indication: HORMONE REPLACEMENT THERAPY
  5. FLONASE [Concomitant]
     Indication: SEASONAL ALLERGY
  6. PRENATAL VITAMINS [Concomitant]
     Indication: PRODUCT USED FOR UNKNOWN INDICATION
  7. VITAMIN C [Concomitant]
     Indication: PRODUCT USED FOR UNKNOWN INDICATION

REACTIONS (23)
  - Abdominal adhesions [Unknown]
  - Cervical dysplasia [Not Recovered/Not Resolved]
  - Dyspareunia [Not Recovered/Not Resolved]
  - Menometrorrhagia [Not Recovered/Not Resolved]
  - Adnexa uteri pain [Not Recovered/Not Resolved]
  - Mood altered [Unknown]
  - Endometriosis [Not Recovered/Not Resolved]
  - Hot flush [Recovered/Resolved]
  - Gastrointestinal pain [Not Recovered/Not Resolved]
  - Rectal spasm [Not Recovered/Not Resolved]
  - Abdominal distension [Not Recovered/Not Resolved]
  - Insomnia [Recovering/Resolving]
  - Initial insomnia [Recovering/Resolving]
  - Middle insomnia [Recovering/Resolving]
  - Irritability [Recovered/Resolved]
  - Abdominal distension [Recovered/Resolved]
  - Mood swings [Recovered/Resolved]
  - Abdominal pain lower [Recovered/Resolved]
  - Proctalgia [Recovered/Resolved]
  - Vaginal haemorrhage [Recovering/Resolving]
  - Thrombosis [Recovering/Resolving]
  - Night sweats [Recovered/Resolved]
  - Breast enlargement [Not Recovered/Not Resolved]
